FAERS Safety Report 21940949 (Version 1)
Quarter: 2023Q1

REPORT INFORMATION
  Report Type: Report from Study
  Country: US (occurrence: US)
  Receive Date: 20230202
  Receipt Date: 20230202
  Transmission Date: 20230417
  Serious: No
  Sender: FDA-Public Use
  Company Number: US-EXELIXIS-CABO-22052703

PATIENT
  Age: 74 Year
  Sex: Female

DRUGS (1)
  1. CABOMETYX [Suspect]
     Active Substance: CABOZANTINIB S-MALATE
     Indication: Product used for unknown indication
     Dosage: 40 MG, QD
     Route: 048
     Dates: start: 20220515

REACTIONS (11)
  - Tremor [Unknown]
  - Laryngitis [Unknown]
  - Liver function test increased [Recovering/Resolving]
  - Alopecia [Recovering/Resolving]
  - Oral pain [Recovering/Resolving]
  - Diarrhoea [Unknown]
  - Fatigue [Recovering/Resolving]
  - Blood pressure systolic increased [Unknown]
  - Headache [Unknown]
  - Nausea [Unknown]
  - Weight decreased [Recovering/Resolving]

NARRATIVE: CASE EVENT DATE: 20220524
